FAERS Safety Report 12790310 (Version 1)
Quarter: 2016Q3

REPORT INFORMATION
  Report Type: Spontaneous
  Country: US (occurrence: US)
  Receive Date: 20160928
  Receipt Date: 20160928
  Transmission Date: 20161109
  Serious: Yes (Hospitalization)
  Sender: FDA-Public Use
  Company Number: US-RELYPSA-RLY2016002614

PATIENT
  Age: 58 Year
  Sex: Male

DRUGS (6)
  1. DULCOLAX NOS [Concomitant]
     Active Substance: BISACODYL OR DOCUSATE SODIUM
  2. SENNA [Concomitant]
     Active Substance: SENNA LEAF\SENNOSIDES\SENNOSIDES A AND B
  3. MEGACE ORAL [Concomitant]
  4. SODIUM POLYSTYRENE SULFONATE. [Concomitant]
     Active Substance: SODIUM POLYSTYRENE SULFONATE
  5. VELTASSA [Suspect]
     Active Substance: PATIROMER
     Indication: HYPERKALAEMIA
     Dosage: UNKNOWN
     Route: 065
  6. COLACE [Concomitant]
     Active Substance: DOCUSATE SODIUM

REACTIONS (1)
  - Cerebrovascular accident [Unknown]

NARRATIVE: CASE EVENT DATE: 20160919
